FAERS Safety Report 7351931-4 (Version None)
Quarter: 2011Q1

REPORT INFORMATION
  Report Type: 
  Country: None (occurrence: None)
  Receive Date: 20110315
  Receipt Date: 20110124
  Transmission Date: 20110831
  Serious: Yes (Hospitalization, Other)
  Sender: FDA-Public Use
  Company Number: US-BAYER-2011-022097

PATIENT
  Sex: Female
  Weight: 58.957 kg

DRUGS (3)
  1. WELLBUTRIN [Concomitant]
     Dosage: 300 MG, UNK
  2. YAZ [Suspect]
     Indication: MENSTRUATION IRREGULAR
     Dosage: UNK
     Dates: start: 20070501, end: 20090401
  3. LEVOXYL [Concomitant]
     Indication: HYPOTHYROIDISM
     Dosage: 50 MCG/24HR, QD
     Dates: start: 20020101

REACTIONS (6)
  - PAIN [None]
  - NAUSEA [None]
  - RENAL IMPAIRMENT [None]
  - HEPATIC LESION [None]
  - CHOLECYSTITIS [None]
  - RENAL NEOPLASM [None]
